FAERS Safety Report 10243667 (Version 2)
Quarter: 2014Q3

REPORT INFORMATION
  Report Type: Spontaneous
  Country: US (occurrence: US)
  Receive Date: 20140618
  Receipt Date: 20140707
  Transmission Date: 20150326
  Serious: No
  Sender: FDA-Public Use
  Company Number: US-PFIZER INC-2014162719

PATIENT
  Age: 76 Year
  Sex: Male

DRUGS (1)
  1. SUTENT [Suspect]
     Active Substance: SUNITINIB MALATE
     Dosage: 50 MG, CYCLIC (DAILY FOR 28 DAYS 2 WEEKS OFF)
     Route: 048
     Dates: start: 20140506

REACTIONS (3)
  - Tongue blistering [Unknown]
  - Oral mucosal blistering [Unknown]
  - Insomnia [Unknown]

NARRATIVE: CASE EVENT DATE: 20140611
